FAERS Safety Report 17767491 (Version 3)
Quarter: 2021Q4

REPORT INFORMATION
  Report Type: Spontaneous
  Country: DE (occurrence: DE)
  Receive Date: 20200511
  Receipt Date: 20211025
  Transmission Date: 20220304
  Serious: Yes (Death, Other)
  Sender: FDA-Public Use
  Company Number: DE-OTSUKA-2020_011704

PATIENT

DRUGS (22)
  1. BUSULFAN [Suspect]
     Active Substance: BUSULFAN
     Indication: Immunosuppressant drug therapy
     Dosage: UNK
     Route: 065
  2. BUSULFAN [Suspect]
     Active Substance: BUSULFAN
     Indication: T-cell prolymphocytic leukaemia
     Dosage: CYCLICAL, PATIENT RECEIVED TOTAL 12 CYCLES OF BUSULFAN (FBC REGIMEN)
     Route: 065
  3. BUSULFAN [Suspect]
     Active Substance: BUSULFAN
     Indication: Bone marrow conditioning regimen
  4. BUSULFAN [Suspect]
     Active Substance: BUSULFAN
     Indication: Allogenic stem cell transplantation
  5. CYCLOSPORINE [Suspect]
     Active Substance: CYCLOSPORINE
     Indication: Prophylaxis against graft versus host disease
     Dosage: 200 NG/ML,QD; TARGET LEVEL OF 200 NG/ML/DAY
     Route: 065
  6. MYCOPHENOLATE MOFETIL [Suspect]
     Active Substance: MYCOPHENOLATE MOFETIL
     Indication: Prophylaxis against graft versus host disease
     Dosage: UNK, QD
     Route: 065
  7. FLUDARABINE PHOSPHATE [Suspect]
     Active Substance: FLUDARABINE PHOSPHATE
     Indication: T-cell prolymphocytic leukaemia
     Dosage: UNK
     Route: 065
  8. FLUDARABINE PHOSPHATE [Suspect]
     Active Substance: FLUDARABINE PHOSPHATE
     Indication: Immunosuppressant drug therapy
     Dosage: PATIENT RECEIVED TOTAL 12 CYCLES OF FLUDARABINE (FBC REGIMEN)
     Route: 065
  9. FLUDARABINE PHOSPHATE [Suspect]
     Active Substance: FLUDARABINE PHOSPHATE
     Indication: Allogenic stem cell transplantation
  10. FLUDARABINE PHOSPHATE [Suspect]
     Active Substance: FLUDARABINE PHOSPHATE
     Indication: Bone marrow conditioning regimen
  11. ALEMTUZUMAB [Suspect]
     Active Substance: ALEMTUZUMAB
     Indication: Immunosuppressant drug therapy
     Dosage: QW; 3,10,30 MG/48 HOURS WEEKLY
     Route: 041
  12. ALEMTUZUMAB [Suspect]
     Active Substance: ALEMTUZUMAB
     Indication: T-cell prolymphocytic leukaemia
     Dosage: 30 MG/48 HOURS WEEKLY;
     Route: 041
  13. ALEMTUZUMAB [Suspect]
     Active Substance: ALEMTUZUMAB
     Indication: Allogenic stem cell transplantation
     Dosage: 3 MILLIGRAM, Q2D; IV DRIP
     Route: 041
  14. ALEMTUZUMAB [Suspect]
     Active Substance: ALEMTUZUMAB
     Dosage: 30 MG, Q48H (IN THE FIRST WEEK); IV DRIP
     Route: 041
  15. ALEMTUZUMAB [Suspect]
     Active Substance: ALEMTUZUMAB
     Dosage: QW; 3, 10, AND 30 MG/48 HOURS IN FIRST WEEK; IV DRIP
     Route: 041
  16. ALEMTUZUMAB [Suspect]
     Active Substance: ALEMTUZUMAB
     Dosage: 30 MG/48 HOURS WEEKLY; IV DRIP
     Route: 041
  17. ALEMTUZUMAB [Suspect]
     Active Substance: ALEMTUZUMAB
     Dosage: 10 MG, Q48H (IN THE FIRST WEEK); IV DRIP
     Route: 041
  18. CYCLOPHOSPHAMIDE [Suspect]
     Active Substance: CYCLOPHOSPHAMIDE
     Indication: Immunosuppressant drug therapy
     Dosage: UNK, CYCLICAL, PATIENT RECEIVED TOTAL 12 CYCLES OF  CYCLOPHOSPHAMIDE (FBC REGIMEN)
     Route: 065
  19. CYCLOPHOSPHAMIDE [Suspect]
     Active Substance: CYCLOPHOSPHAMIDE
     Indication: T-cell prolymphocytic leukaemia
     Dosage: QD; TARGET LEVEL OF 200 NG/ML/DAY
     Route: 065
  20. CYCLOPHOSPHAMIDE [Suspect]
     Active Substance: CYCLOPHOSPHAMIDE
     Indication: Allogenic stem cell transplantation
  21. CYCLOPHOSPHAMIDE [Suspect]
     Active Substance: CYCLOPHOSPHAMIDE
     Indication: Prophylaxis against graft versus host disease
  22. CYCLOPHOSPHAMIDE [Suspect]
     Active Substance: CYCLOPHOSPHAMIDE
     Indication: Bone marrow conditioning regimen

REACTIONS (10)
  - T-cell prolymphocytic leukaemia [Fatal]
  - Disease progression [Fatal]
  - Cytomegalovirus infection reactivation [Fatal]
  - Septic shock [Fatal]
  - Pneumonia cytomegaloviral [Fatal]
  - Chronic graft versus host disease [Unknown]
  - Lymphocytosis [Unknown]
  - Splenomegaly [Unknown]
  - Off label use [Unknown]
  - Product use in unapproved indication [Unknown]
